FAERS Safety Report 9785660 (Version 1)
Quarter: 2013Q4

REPORT INFORMATION
  Report Type: Spontaneous
  Country: US (occurrence: US)
  Receive Date: 20131227
  Receipt Date: 20131227
  Transmission Date: 20140711
  Serious: No
  Sender: FDA-Public Use
  Company Number: US-B.I. PHARMACEUTICALS,INC./RIDGEFIELD-2013-BI-42528BP

PATIENT
  Sex: Female
  Weight: 87 kg

DRUGS (6)
  1. PRADAXA [Suspect]
     Indication: ATRIAL FIBRILLATION
     Dosage: 300 MG
     Route: 048
     Dates: start: 2010
  2. METOPROLOL [Concomitant]
     Indication: HYPERTENSION
     Dosage: 75 MG
     Route: 048
  3. LASIX [Concomitant]
     Dosage: 40 MG
     Route: 048
  4. POTASSIUM ER [Concomitant]
     Dosage: 10 MEQ
     Route: 048
  5. TYLENOL [Concomitant]
     Indication: ARTHRITIS
     Route: 048
  6. ATIVAN [Concomitant]
     Indication: INSOMNIA

REACTIONS (2)
  - Contusion [Not Recovered/Not Resolved]
  - Pain [Not Recovered/Not Resolved]
